FAERS Safety Report 18428625 (Version 2)
Quarter: 2020Q4

REPORT INFORMATION
  Report Type: Spontaneous
  Country: NO (occurrence: NO)
  Receive Date: 20201026
  Receipt Date: 20201113
  Transmission Date: 20210114
  Serious: Yes (Hospitalization)
  Sender: FDA-Public Use
  Company Number: NO-CELGENEUS-NOR-20201004740

PATIENT
  Age: 61 Year
  Sex: Female
  Weight: 64.8 kg

DRUGS (53)
  1. ABRAXANE [Suspect]
     Active Substance: PACLITAXEL
     Dosage: 100 MILLIGRAM
     Route: 041
     Dates: start: 20190702, end: 20190702
  2. ABRAXANE [Suspect]
     Active Substance: PACLITAXEL
     Dosage: 100 MILLIGRAM
     Route: 041
     Dates: start: 20200310, end: 20200310
  3. OLECLUMAB (MEDI9447) [Suspect]
     Active Substance: OLECLUMAB
     Dosage: 3000 MILLIGRAM
     Route: 042
     Dates: start: 20190702, end: 20190702
  4. OLECLUMAB (MEDI9447) [Suspect]
     Active Substance: OLECLUMAB
     Dosage: 3000 MILLIGRAM
     Route: 042
     Dates: start: 20200210, end: 20200210
  5. GEMCITABINE. [Suspect]
     Active Substance: GEMCITABINE
     Dosage: 1000 MILLIGRAM
     Route: 041
     Dates: start: 20190603, end: 20190603
  6. GEMCITABINE. [Suspect]
     Active Substance: GEMCITABINE
     Dosage: 800 MILLIGRAM
     Route: 041
     Dates: start: 20200114, end: 20200114
  7. GEMCITABINE. [Suspect]
     Active Substance: GEMCITABINE
     Dosage: 800 MILLIGRAM
     Route: 041
     Dates: start: 20200210, end: 20200210
  8. GEMCITABINE. [Suspect]
     Active Substance: GEMCITABINE
     Dosage: 800 MILLIGRAM
     Route: 041
     Dates: start: 20200310, end: 20200310
  9. GEMCITABINE. [Suspect]
     Active Substance: GEMCITABINE
     Dosage: 800 MILLIGRAM
     Route: 041
     Dates: start: 20200810, end: 20200810
  10. GEMCITABINE. [Suspect]
     Active Substance: GEMCITABINE
     Dosage: 800 MILLIGRAM
     Route: 041
     Dates: start: 20200826, end: 20200826
  11. ABRAXANE [Suspect]
     Active Substance: PACLITAXEL
     Dosage: 125 MILLIGRAM
     Route: 041
     Dates: start: 20190507, end: 20190507
  12. ABRAXANE [Suspect]
     Active Substance: PACLITAXEL
     Dosage: 100 MILLIGRAM
     Route: 041
     Dates: start: 20200602, end: 20200602
  13. OLECLUMAB (MEDI9447) [Suspect]
     Active Substance: OLECLUMAB
     Dosage: 3000 MILLIGRAM
     Route: 042
     Dates: start: 20190603, end: 20190603
  14. OLECLUMAB (MEDI9447) [Suspect]
     Active Substance: OLECLUMAB
     Dosage: 3000 MILLIGRAM
     Route: 042
     Dates: start: 20191119, end: 20191119
  15. OLECLUMAB (MEDI9447) [Suspect]
     Active Substance: OLECLUMAB
     Dosage: 3000 MILLIGRAM
     Route: 042
     Dates: start: 20191217, end: 20191217
  16. OLECLUMAB (MEDI9447) [Suspect]
     Active Substance: OLECLUMAB
     Dosage: 3000 MILLIGRAM
     Route: 042
     Dates: start: 20200729, end: 20200729
  17. GEMCITABINE. [Suspect]
     Active Substance: GEMCITABINE
     Dosage: 800 MILLIGRAM
     Route: 041
     Dates: start: 20190813, end: 20190813
  18. ABRAXANE [Suspect]
     Active Substance: PACLITAXEL
     Indication: PANCREATIC CARCINOMA METASTATIC
     Dosage: 125 MILLIGRAM
     Route: 041
     Dates: start: 20190409, end: 20190409
  19. OLECLUMAB (MEDI9447) [Suspect]
     Active Substance: OLECLUMAB
     Dosage: 3000 MILLIGRAM
     Route: 042
     Dates: start: 20200310, end: 20200310
  20. ABRAXANE [Suspect]
     Active Substance: PACLITAXEL
     Dosage: 100 MILLIGRAM
     Route: 041
     Dates: start: 20191008, end: 20191008
  21. ABRAXANE [Suspect]
     Active Substance: PACLITAXEL
     Dosage: 100 MILLIGRAM
     Route: 041
     Dates: start: 20191105, end: 20191105
  22. ABRAXANE [Suspect]
     Active Substance: PACLITAXEL
     Dosage: 100 MILLIGRAM
     Route: 041
     Dates: start: 20200406, end: 20200406
  23. ABRAXANE [Suspect]
     Active Substance: PACLITAXEL
     Dosage: 100 MILLIGRAM
     Route: 041
     Dates: start: 20200519, end: 20200519
  24. ABRAXANE [Suspect]
     Active Substance: PACLITAXEL
     Dosage: 100 MILLIGRAM
     Route: 041
     Dates: start: 20200810, end: 20200810
  25. OLECLUMAB (MEDI9447) [Suspect]
     Active Substance: OLECLUMAB
     Indication: PANCREATIC CARCINOMA METASTATIC
     Dosage: 3000 MILLIGRAM
     Route: 042
     Dates: start: 20190409, end: 20190409
  26. OLECLUMAB (MEDI9447) [Suspect]
     Active Substance: OLECLUMAB
     Dosage: 3000 MILLIGRAM
     Route: 042
     Dates: start: 20190507, end: 20190507
  27. OLECLUMAB (MEDI9447) [Suspect]
     Active Substance: OLECLUMAB
     Dosage: 3000 MILLIGRAM
     Route: 042
     Dates: start: 20200826, end: 20200826
  28. GEMCITABINE. [Suspect]
     Active Substance: GEMCITABINE
     Dosage: 800 MILLIGRAM
     Route: 041
     Dates: start: 20191008, end: 20191008
  29. GEMCITABINE. [Suspect]
     Active Substance: GEMCITABINE
     Dosage: 800 MILLIGRAM
     Route: 041
     Dates: start: 20200505, end: 20200505
  30. OLECLUMAB (MEDI9447) [Suspect]
     Active Substance: OLECLUMAB
     Dosage: 3000 MILLIGRAM
     Route: 042
     Dates: start: 20190924, end: 20190924
  31. OLECLUMAB (MEDI9447) [Suspect]
     Active Substance: OLECLUMAB
     Dosage: 3000 MILLIGRAM
     Route: 042
     Dates: start: 20200406, end: 20200406
  32. GEMCITABINE. [Suspect]
     Active Substance: GEMCITABINE
     Dosage: 800 MILLIGRAM
     Route: 041
     Dates: start: 20190702, end: 20190702
  33. ABRAXANE [Suspect]
     Active Substance: PACLITAXEL
     Dosage: 100 MILLIGRAM
     Route: 041
     Dates: start: 20190813, end: 20190813
  34. ABRAXANE [Suspect]
     Active Substance: PACLITAXEL
     Dosage: 100 MILLIGRAM
     Route: 041
     Dates: start: 20190911, end: 20190911
  35. ABRAXANE [Suspect]
     Active Substance: PACLITAXEL
     Dosage: 100 MILLIGRAM
     Route: 041
     Dates: start: 20191203, end: 20191203
  36. ABRAXANE [Suspect]
     Active Substance: PACLITAXEL
     Dosage: 100 MILLIGRAM
     Route: 041
     Dates: start: 20200714, end: 20200714
  37. OLECLUMAB (MEDI9447) [Suspect]
     Active Substance: OLECLUMAB
     Dosage: 3000 MILLIGRAM
     Route: 042
     Dates: start: 20191022, end: 20191022
  38. OLECLUMAB (MEDI9447) [Suspect]
     Active Substance: OLECLUMAB
     Dosage: 3000 MILLIGRAM
     Route: 042
     Dates: start: 20200602, end: 20200602
  39. GEMCITABINE. [Suspect]
     Active Substance: GEMCITABINE
     Dosage: 800 MILLIGRAM
     Route: 041
     Dates: start: 20191203, end: 20191203
  40. GEMCITABINE. [Suspect]
     Active Substance: GEMCITABINE
     Dosage: 800 MILLIGRAM
     Route: 041
     Dates: start: 20200602, end: 20200602
  41. GEMCITABINE. [Suspect]
     Active Substance: GEMCITABINE
     Dosage: 800 MILLIGRAM
     Route: 041
     Dates: start: 20200714, end: 20200714
  42. ABRAXANE [Suspect]
     Active Substance: PACLITAXEL
     Dosage: 100 MILLIGRAM
     Route: 041
     Dates: start: 20200210, end: 20200210
  43. ABRAXANE [Suspect]
     Active Substance: PACLITAXEL
     Dosage: 100 MILLIGRAM
     Route: 041
     Dates: start: 20200826, end: 20200826
  44. GEMCITABINE. [Suspect]
     Active Substance: GEMCITABINE
     Dosage: 1000 MILLIGRAM
     Route: 041
     Dates: start: 20190507, end: 20190507
  45. GEMCITABINE. [Suspect]
     Active Substance: GEMCITABINE
     Dosage: 800 MILLIGRAM
     Route: 041
     Dates: start: 20200406, end: 20200406
  46. ABRAXANE [Suspect]
     Active Substance: PACLITAXEL
     Dosage: 125 MILLIGRAM
     Route: 041
     Dates: start: 20190603, end: 20190603
  47. ABRAXANE [Suspect]
     Active Substance: PACLITAXEL
     Dosage: 100 MILLIGRAM
     Route: 041
     Dates: start: 20200114, end: 20200114
  48. OLECLUMAB (MEDI9447) [Suspect]
     Active Substance: OLECLUMAB
     Dosage: 3000 MILLIGRAM
     Route: 042
     Dates: start: 20190827, end: 20190827
  49. OLECLUMAB (MEDI9447) [Suspect]
     Active Substance: OLECLUMAB
     Dosage: 3000 MILLIGRAM
     Route: 042
     Dates: start: 20200114, end: 20200114
  50. OLECLUMAB (MEDI9447) [Suspect]
     Active Substance: OLECLUMAB
     Dosage: 3000 MILLIGRAM
     Route: 042
     Dates: start: 20200505, end: 20200505
  51. GEMCITABINE. [Suspect]
     Active Substance: GEMCITABINE
     Indication: PANCREATIC CARCINOMA METASTATIC
     Dosage: 1000 MILLIGRAM
     Route: 041
     Dates: start: 20190409, end: 20190409
  52. GEMCITABINE. [Suspect]
     Active Substance: GEMCITABINE
     Dosage: 800 MILLIGRAM
     Route: 041
     Dates: start: 20190911, end: 20190911
  53. GEMCITABINE. [Suspect]
     Active Substance: GEMCITABINE
     Dosage: 800 MILLIGRAM
     Route: 041
     Dates: start: 20191105, end: 20191105

REACTIONS (1)
  - Ascites [Recovered/Resolved]

NARRATIVE: CASE EVENT DATE: 20201008
